FAERS Safety Report 16973531 (Version 1)
Quarter: 2019Q4

REPORT INFORMATION
  Report Type: Spontaneous
  Country: JP (occurrence: JP)
  Receive Date: 20191030
  Receipt Date: 20191030
  Transmission Date: 20200122
  Serious: Yes (Hospitalization, Other)
  Sender: FDA-Public Use
  Company Number: JP-GLAXOSMITHKLINE-JP2019JPN089650

PATIENT
  Age: 70 Year
  Sex: Female

DRUGS (12)
  1. NEXIUM CAPSULE [Concomitant]
     Dosage: 20 MG, QD(AFTER BREAKFAST)
  2. EPINASTINE HYDROCHLORIDE TABLETS [Concomitant]
     Dosage: 20 MG, QD(AFTER DINNER)
  3. MEPOLIZUMAB [Suspect]
     Active Substance: MEPOLIZUMAB
     Indication: ASTHMA
     Dosage: 100 MG PER MONTH
     Route: 058
     Dates: end: 2019
  4. AUGMENTIN [Suspect]
     Active Substance: AMOXICILLIN\CLAVULANATE POTASSIUM
     Indication: BRONCHITIS
     Dosage: 250 MG, TID
     Route: 048
     Dates: start: 20190531, end: 20190604
  5. CRESTOR OD TABLETS [Concomitant]
     Dosage: 2.5 MG, QD(AFTER DINNER)
  6. THEODUR TABLETS [Concomitant]
     Dosage: 100 MG, BID
  7. BONALON ORAL JELLY [Concomitant]
     Dosage: 35 MG, WE
  8. AUGMENTIN [Suspect]
     Active Substance: AMOXICILLIN\CLAVULANATE POTASSIUM
     Dosage: 250 MG, TID
     Route: 048
     Dates: start: 20190625
  9. SYMBICORT [Concomitant]
     Active Substance: BUDESONIDE\FORMOTEROL FUMARATE DIHYDRATE
     Dosage: 2 DF, BID
  10. CARBOCISTEINE TABLETS [Concomitant]
     Active Substance: CARBOCYSTEINE
     Dosage: 500 MG, TID
  11. SINGULAIR OD TABLETS [Concomitant]
     Dosage: 10 MG, QD(EARLY EVENING)
  12. SPIRIVA [Concomitant]
     Active Substance: TIOTROPIUM BROMIDE MONOHYDRATE
     Dosage: UNK
     Dates: start: 20190527

REACTIONS (3)
  - Bronchitis [Recovered/Resolved]
  - Prescribed overdose [Unknown]
  - Pneumonia [Recovering/Resolving]

NARRATIVE: CASE EVENT DATE: 2019
